FAERS Safety Report 21700557 (Version 2)
Quarter: 2023Q1

REPORT INFORMATION
  Report Type: Spontaneous
  Country: CO (occurrence: CO)
  Receive Date: 20221208
  Receipt Date: 20230127
  Transmission Date: 20230418
  Serious: Yes (Hospitalization, Other)
  Sender: FDA-Public Use
  Company Number: CO-AMGEN-COLSP2022208954

PATIENT
  Age: 13 Year
  Sex: Male
  Weight: 69 kg

DRUGS (9)
  1. BLINCYTO [Suspect]
     Active Substance: BLINATUMOMAB
     Indication: Acute lymphocytic leukaemia
     Dosage: 5 MICROGRAM, EVERY 24 HOURS
     Route: 040
     Dates: start: 20221126, end: 20221127
  2. BLINCYTO [Suspect]
     Active Substance: BLINATUMOMAB
     Dosage: 8.7 MICROGRAM, QD (DAYS 1 2 , 3, 4 AND 5 OF THE CYCLE)
     Route: 040
     Dates: start: 20221109
  3. BLINCYTO [Suspect]
     Active Substance: BLINATUMOMAB
     Dosage: 27 MICROGRAM, QD (FROM DAY 6 TO DAY 28 OF THE CYCLE)
     Route: 040
  4. ACETAMINOPHEN [Concomitant]
     Active Substance: ACETAMINOPHEN
     Dosage: 500 MILLIGRAM, Q6H
     Route: 048
     Dates: start: 20221126, end: 20221127
  5. DEXAMETHASONE [Concomitant]
     Active Substance: DEXAMETHASONE
     Dosage: 8 MILLIGRAM, UNIQUE
     Route: 040
     Dates: start: 20221126, end: 20221126
  6. MEROPENEM [Concomitant]
     Active Substance: MEROPENEM
     Dosage: 2000 MILLIGRAM, Q8H
     Route: 040
     Dates: start: 20221127, end: 20221129
  7. VANCOMYCIN [Concomitant]
     Active Substance: VANCOMYCIN
     Dosage: 500 MILLIGRAM, Q8H
     Route: 040
     Dates: start: 20221127, end: 20221129
  8. TRIMETHOPRIM SULFATE [Concomitant]
     Active Substance: TRIMETHOPRIM SULFATE
     Indication: Prophylaxis
     Dosage: 160 MILLIGRAM, THREE TIMES A WEEK
  9. AMLODIPINE [Concomitant]
     Active Substance: AMLODIPINE BESYLATE
     Indication: Hypertension
     Dosage: 7.5 MILLIGRAM, QD

REACTIONS (7)
  - Jaundice [Recovered/Resolved with Sequelae]
  - Hypoxia [Recovered/Resolved]
  - Hyperbilirubinaemia [Recovered/Resolved with Sequelae]
  - Hypotension [Recovered/Resolved with Sequelae]
  - Disorientation [Recovered/Resolved with Sequelae]
  - Abdominal pain upper [Recovered/Resolved]
  - Pyrexia [Recovered/Resolved]

NARRATIVE: CASE EVENT DATE: 20221027
